FAERS Safety Report 5688887-6 (Version None)
Quarter: 2008Q1

REPORT INFORMATION
  Report Type: 
  Country: None (occurrence: None)
  Receive Date: 20080331
  Receipt Date: 20080328
  Transmission Date: 20080703
  Serious: Yes (Other)
  Sender: FDA-Public Use
  Company Number: A0718155A

PATIENT
  Sex: Female

DRUGS (1)
  1. NICORETTE [Suspect]
     Indication: NICOTINE DEPENDENCE
     Route: 002
     Dates: start: 20080319, end: 20080320

REACTIONS (3)
  - DIZZINESS [None]
  - EYE SWELLING [None]
  - VISUAL ACUITY REDUCED [None]
